FAERS Safety Report 18133888 (Version 1)
Quarter: 2020Q3

REPORT INFORMATION
  Report Type: Spontaneous
  Country: ES (occurrence: ES)
  Receive Date: 20200811
  Receipt Date: 20200811
  Transmission Date: 20201103
  Serious: Yes (Other)
  Sender: FDA-Public Use
  Company Number: ES-TEVA-2020-ES-1812166

PATIENT
  Age: 74 Year
  Sex: Female
  Weight: 90 kg

DRUGS (1)
  1. CIPROFLOXACINO 500 MG 14 COMPRIMIDOS [Suspect]
     Active Substance: CIPROFLOXACIN
     Indication: INGROWING NAIL
     Dosage: 500 MG
     Route: 048
     Dates: start: 20200211, end: 20200212

REACTIONS (1)
  - Face oedema [Recovered/Resolved]

NARRATIVE: CASE EVENT DATE: 20200212
